FAERS Safety Report 6340054-9 (Version None)
Quarter: 2009Q3

REPORT INFORMATION
  Report Type: 
  Country: None (occurrence: None)
  Receive Date: 20090903
  Receipt Date: 20090825
  Transmission Date: 20100115
  Serious: Yes (Other)
  Sender: FDA-Public Use
  Company Number: DE-GENENTECH-289521

PATIENT
  Sex: Male

DRUGS (4)
  1. RANIBIZUMAB [Suspect]
     Indication: MACULAR DEGENERATION
     Dosage: UNK
     Route: 031
     Dates: start: 20080922
  2. RANIBIZUMAB [Suspect]
     Dosage: UNK
     Route: 031
     Dates: start: 20081028
  3. RANIBIZUMAB [Suspect]
     Dosage: UNK
     Route: 031
     Dates: start: 20081125
  4. FORTECORTIN [Concomitant]
     Indication: DRUG USE FOR UNKNOWN INDICATION
     Dosage: UNK
     Dates: start: 20080922, end: 20081125

REACTIONS (1)
  - RETINAL PIGMENT EPITHELIAL TEAR [None]
